FAERS Safety Report 10893232 (Version 2)
Quarter: 2015Q2

REPORT INFORMATION
  Report Type: Spontaneous
  Country: JP (occurrence: JP)
  Receive Date: 20150306
  Receipt Date: 20150422
  Transmission Date: 20150821
  Serious: Yes (Other)
  Sender: FDA-Public Use
  Company Number: JP-ALLERGAN-1503770US

PATIENT
  Age: 68 Year
  Sex: Female

DRUGS (6)
  1. BOTOX [Suspect]
     Active Substance: ONABOTULINUMTOXINA
     Indication: FACIAL SPASM
     Dosage: 2.5 UNITS, SINGLE (2 INJECTIONS)
     Route: 030
     Dates: start: 20140908, end: 20140908
  2. BOTOX [Suspect]
     Active Substance: ONABOTULINUMTOXINA
     Dosage: 2.5 UNITS, SINGLE (2 INJECTIONS)
     Route: 030
     Dates: start: 20140908, end: 20140908
  3. BOTOX [Suspect]
     Active Substance: ONABOTULINUMTOXINA
     Dosage: 2.5 UNITS, SINGLE
     Route: 030
     Dates: start: 20140908, end: 20140908
  4. METHYCOBAL [Concomitant]
     Active Substance: METHYLCOBALAMIN
  5. BOTOX [Suspect]
     Active Substance: ONABOTULINUMTOXINA
     Dosage: 2.5 UNITS, SINGLE
     Route: 030
     Dates: start: 20140908, end: 20140908
  6. DEPAS [Concomitant]
     Active Substance: ETIZOLAM

REACTIONS (1)
  - VIIth nerve paralysis [Not Recovered/Not Resolved]

NARRATIVE: CASE EVENT DATE: 20141006
